FAERS Safety Report 6184714-1 (Version None)
Quarter: 2009Q2

REPORT INFORMATION
  Report Type: 
  Country: None (occurrence: None)
  Receive Date: 20090508
  Receipt Date: 20090428
  Transmission Date: 20091009
  Serious: Yes (Other)
  Sender: FDA-Public Use
  Company Number: JP-PFIZER INC-2009188948

PATIENT
  Age: 42 Year

DRUGS (1)
  1. RELPAX [Suspect]
     Dosage: UNK
     Route: 048
     Dates: start: 20081031, end: 20081031

REACTIONS (1)
  - CEREBRAL INFARCTION [None]
